FAERS Safety Report 9916842 (Version 1)
Quarter: 2014Q1

REPORT INFORMATION
  Report Type: Spontaneous
  Country: US (occurrence: US)
  Receive Date: 20140221
  Receipt Date: 20140221
  Transmission Date: 20141002
  Serious: Yes (Other)
  Sender: FDA-Public Use
  Company Number: US-ENDO PHARMACEUTICALS INC.-CLOZ20140006

PATIENT
  Age: 28 Year
  Sex: Female
  Weight: 56.75 kg

DRUGS (2)
  1. CLONAZEPAM 1MG [Suspect]
     Indication: ANXIETY
     Dosage: UNK
     Route: 048
     Dates: start: 20140212, end: 20140213
  2. CLONAZEPAM 1MG [Suspect]
     Indication: INSOMNIA

REACTIONS (6)
  - Abasia [Recovered/Resolved]
  - Coordination abnormal [Not Recovered/Not Resolved]
  - Depressed mood [Not Recovered/Not Resolved]
  - Tension [Recovered/Resolved]
  - Dry mouth [Not Recovered/Not Resolved]
  - Drug ineffective for unapproved indication [Recovered/Resolved]
